FAERS Safety Report 6667859-9 (Version None)
Quarter: 2010Q2

REPORT INFORMATION
  Report Type: 
  Country: None (occurrence: None)
  Receive Date: 20100405
  Receipt Date: 20100324
  Transmission Date: 20101027
  Serious: Yes (Hospitalization, Other)
  Sender: FDA-Public Use
  Company Number: US-PFIZER INC-2010015699

PATIENT
  Age: 23 Year
  Sex: Male
  Weight: 76.81 kg

DRUGS (5)
  1. CHANTIX [Suspect]
     Indication: SMOKING CESSATION THERAPY
     Dosage: UNK MG,
     Dates: start: 20090917
  2. CHANTIX [Suspect]
     Dosage: 1 MG, 2X/DAY
     Dates: start: 20090101, end: 20091117
  3. TYLENOL (CAPLET) [Suspect]
  4. BENADRYL [Suspect]
  5. ALBUTEROL [Concomitant]
     Dosage: PRN COUGH

REACTIONS (4)
  - LOSS OF CONSCIOUSNESS [None]
  - OVERDOSE [None]
  - PERSONALITY CHANGE [None]
  - SUICIDE ATTEMPT [None]
